FAERS Safety Report 11105257 (Version 2)
Quarter: 2015Q2

REPORT INFORMATION
  Report Type: Spontaneous
  Country: BR (occurrence: BR)
  Receive Date: 20150511
  Receipt Date: 20150514
  Transmission Date: 20150821
  Serious: Yes (Death, Hospitalization, Other)
  Sender: FDA-Public Use
  Company Number: BR-ABBVIE-15K-020-1388601-00

PATIENT
  Sex: Male

DRUGS (1)
  1. HUMIRA [Suspect]
     Active Substance: ADALIMUMAB
     Indication: RHEUMATOID ARTHRITIS
     Route: 065
     Dates: end: 201503

REACTIONS (7)
  - Central nervous system inflammation [Unknown]
  - Gliosis [Unknown]
  - Seizure [Unknown]
  - Post procedural haematoma [Unknown]
  - Malaise [Unknown]
  - Death [Fatal]
  - Cardio-respiratory arrest [Unknown]

NARRATIVE: CASE EVENT DATE: 20150429
